FAERS Safety Report 5904692-7 (Version None)
Quarter: 2008Q4

REPORT INFORMATION
  Report Type: 
  Country: None (occurrence: None)
  Receive Date: 20081001
  Receipt Date: 20080919
  Transmission Date: 20090506
  Serious: Yes (Death, Hospitalization)
  Sender: FDA-Public Use
  Company Number: US-JNJFOC-20080804587

PATIENT
  Sex: Female

DRUGS (8)
  1. ORTHO EVRA [Suspect]
     Indication: HORMONE LEVEL ABNORMAL
     Route: 062
  2. ORTHO EVRA [Suspect]
     Indication: DRUG THERAPY
     Route: 062
  3. ORTHO EVRA [Suspect]
     Indication: DEPRESSION
     Route: 062
  4. LORAZEPAM [Concomitant]
  5. PROZAC [Concomitant]
  6. WELLBUTRIN [Concomitant]
  7. LIBRIUM [Concomitant]
  8. TRAMADOL HCL [Concomitant]

REACTIONS (3)
  - COMPLETED SUICIDE [None]
  - INTRACRANIAL VENOUS SINUS THROMBOSIS [None]
  - OFF LABEL USE [None]
